FAERS Safety Report 8019245-7 (Version None)
Quarter: 2012Q1

REPORT INFORMATION
  Report Type: 
  Country: None (occurrence: None)
  Receive Date: 20120103
  Receipt Date: 20111110
  Transmission Date: 20120608
  Serious: Yes (Hospitalization)
  Sender: FDA-Public Use
  Company Number: US-CELGENEUS-163-21880-11071437

PATIENT
  Sex: Male

DRUGS (8)
  1. CIPROFLOXACIN [Concomitant]
     Route: 065
  2. DIOVAN [Concomitant]
     Route: 065
  3. GLIPIZIDE [Concomitant]
     Route: 065
  4. LYRICA [Concomitant]
     Route: 065
  5. ASPIRIN [Concomitant]
     Indication: PROPHYLAXIS
     Dosage: 81 MILLIGRAM
     Route: 048
     Dates: start: 20090709
  6. REVLIMID [Suspect]
     Indication: MULTIPLE MYELOMA
     Dosage: 10 MILLIGRAM
     Route: 048
     Dates: start: 20090716, end: 20110707
  7. ACIPHEX [Concomitant]
     Route: 065
  8. METFORMIN HCL [Concomitant]
     Route: 065

REACTIONS (1)
  - JAUNDICE [None]
